FAERS Safety Report 21197173 (Version 1)
Quarter: 2022Q3

REPORT INFORMATION
  Report Type: Spontaneous
  Country: CN (occurrence: CN)
  Receive Date: 20220810
  Receipt Date: 20220810
  Transmission Date: 20221026
  Serious: Yes (Other)
  Sender: FDA-Public Use
  Company Number: CN-PFIZER INC-PV202200036552

PATIENT
  Sex: Male
  Weight: 78 kg

DRUGS (1)
  1. AVIBACTAM SODIUM\CEFTAZIDIME [Suspect]
     Active Substance: AVIBACTAM SODIUM\CEFTAZIDIME
     Indication: Pneumonia
     Dosage: 2 G, 3X/DAY
     Route: 041
     Dates: start: 20220621, end: 20220715

REACTIONS (7)
  - Myelosuppression [Unknown]
  - Full blood count decreased [Unknown]
  - Anaemia [Recovering/Resolving]
  - Platelet count decreased [Unknown]
  - Neutrophil count increased [Recovered/Resolved]
  - Off label use [Unknown]
  - Product use issue [Unknown]

NARRATIVE: CASE EVENT DATE: 20220621
